FAERS Safety Report 15159943 (Version 1)
Quarter: 2018Q3

REPORT INFORMATION
  Report Type: Spontaneous
  Country: MX (occurrence: MX)
  Receive Date: 20180718
  Receipt Date: 20180718
  Transmission Date: 20181010
  Serious: Yes (Disabling, Other)
  Sender: FDA-Public Use
  Company Number: MX-SAKK-2018SA185882AA

PATIENT
  Sex: Male
  Weight: 65 kg

DRUGS (1)
  1. TOUJEO [Suspect]
     Active Substance: INSULIN GLARGINE
     Indication: DIABETES MELLITUS
     Dosage: UNK
     Route: 058
     Dates: start: 201705

REACTIONS (1)
  - Gangrene [Recovered/Resolved]

NARRATIVE: CASE EVENT DATE: 201710
